FAERS Safety Report 21955082 (Version 2)
Quarter: 2023Q1

REPORT INFORMATION
  Report Type: Spontaneous
  Country: JP (occurrence: JP)
  Receive Date: 20230206
  Receipt Date: 20230222
  Transmission Date: 20230418
  Serious: Yes (Other)
  Sender: FDA-Public Use
  Company Number: JP-SUN PHARMACEUTICAL INDUSTRIES LTD-2023R1-376453

PATIENT
  Age: 72 Year
  Sex: Female

DRUGS (4)
  1. TRAMADOL [Suspect]
     Active Substance: TRAMADOL
     Indication: Back pain
     Dosage: 200 MILLIGRAM, DAILY
     Route: 048
  2. TRAMADOL [Suspect]
     Active Substance: TRAMADOL
     Dosage: 300 MILLIGRAM, DAILY
     Route: 048
  3. TRAMADOL [Suspect]
     Active Substance: TRAMADOL
     Dosage: 200 MILLIGRAM, DAILY
     Route: 048
  4. TRAMADOL [Suspect]
     Active Substance: TRAMADOL
     Dosage: 100 MILLIGRAM, DAILY
     Route: 048

REACTIONS (1)
  - Hallucination, auditory [Recovered/Resolved]
